FAERS Safety Report 12135910 (Version 2)
Quarter: 2016Q2

REPORT INFORMATION
  Report Type: Spontaneous
  Country: US (occurrence: US)
  Receive Date: 20160302
  Receipt Date: 20160407
  Transmission Date: 20160815
  Serious: No
  Sender: FDA-Public Use
  Company Number: US-009507513-1603USA000442

PATIENT

DRUGS (1)
  1. ZERBAXA [Suspect]
     Active Substance: CEFTOLOZANE SULFATE\TAZOBACTAM SODIUM
     Indication: OSTEOMYELITIS
     Dosage: STRENGTH: 1.5 (UNIT NOT PROVIDED)

REACTIONS (2)
  - Product use issue [Unknown]
  - No adverse event [Unknown]
